FAERS Safety Report 5268196-X (Version None)
Quarter: 2007Q1

REPORT INFORMATION
  Report Type: 
  Country: None (occurrence: None)
  Receive Date: 20070319
  Receipt Date: 20070306
  Transmission Date: 20070707
  Serious: Yes (Hospitalization)
  Sender: FDA-Public Use
  Company Number: PHEH2007US02816

PATIENT

DRUGS (2)
  1. LOTREL [Suspect]
     Dosage: 5/20, BID
     Route: 048
  2. LOTREL [Suspect]
     Dosage: 10/40, QD
     Route: 048

REACTIONS (2)
  - HYPERKALAEMIA [None]
  - RENAL FAILURE [None]
